FAERS Safety Report 9898985 (Version 2)
Quarter: 2014Q4

REPORT INFORMATION
  Report Type: Spontaneous
  Country: FR (occurrence: FR)
  Receive Date: 20140214
  Receipt Date: 20141222
  Transmission Date: 20150529
  Serious: Yes (Hospitalization)
  Sender: FDA-Public Use
  Company Number: FR-GLAXOSMITHKLINE-B0967209A

PATIENT
  Age: 65 Year
  Sex: Male

DRUGS (16)
  1. DEXAMETHASONE. [Suspect]
     Active Substance: DEXAMETHASONE
     Indication: PROCEDURAL VOMITING
     Route: 042
     Dates: start: 20130924, end: 20130924
  2. SUFENTA [Suspect]
     Active Substance: SUFENTANIL CITRATE
     Indication: ANAESTHESIA
     Route: 042
     Dates: start: 20130924, end: 20130924
  3. DIPRIVAN [Suspect]
     Active Substance: PROPOFOL
     Indication: ANAESTHESIA
     Route: 042
     Dates: start: 20130924, end: 20130924
  4. KETAMINE [Suspect]
     Active Substance: KETAMINE
     Indication: ANAESTHESIA
     Route: 042
     Dates: start: 20130924, end: 20130924
  5. NIMBEX [Suspect]
     Active Substance: CISATRACURIUM BESYLATE
     Indication: ANAESTHESIA
     Route: 042
     Dates: start: 20130924, end: 20130924
  6. EUPANTOL [Suspect]
     Active Substance: PANTOPRAZOLE SODIUM
     Indication: PROPHYLAXIS AGAINST GASTROINTESTINAL ULCER
     Route: 048
     Dates: start: 20130925, end: 20130929
  7. ONDANSETRON [Suspect]
     Active Substance: ONDANSETRON
     Indication: PROCEDURAL VOMITING
     Route: 042
     Dates: start: 20130924, end: 20130924
  8. TRIATEC [Concomitant]
     Active Substance: RAMIPRIL
  9. NEFOPAM [Suspect]
     Active Substance: NEFOPAM
     Indication: POSTOPERATIVE ANALGESIA
     Route: 042
     Dates: start: 20130924, end: 20130926
  10. HYPNOVEL [Suspect]
     Active Substance: MIDAZOLAM\MIDAZOLAM HYDROCHLORIDE
     Indication: ANAESTHESIA
     Route: 042
     Dates: start: 20130924, end: 20130924
  11. XARELTO [Suspect]
     Active Substance: RIVAROXABAN
     Indication: PRODUCT USED FOR UNKNOWN INDICATION
     Route: 048
     Dates: start: 20130925, end: 20131029
  12. DROLEPTAN [Suspect]
     Active Substance: DROPERIDOL
     Indication: PROCEDURAL VOMITING
     Route: 042
     Dates: start: 20130924, end: 20130926
  13. PROFENID [Suspect]
     Active Substance: KETOPROFEN
     Indication: PRODUCT USED FOR UNKNOWN INDICATION
     Route: 042
     Dates: start: 20130924, end: 20130926
  14. PARACETAMOL [Suspect]
     Active Substance: ACETAMINOPHEN
     Indication: POSTOPERATIVE ANALGESIA
     Route: 042
     Dates: start: 20130924, end: 20130926
  15. EXACYL [Suspect]
     Active Substance: TRANEXAMIC ACID
     Indication: HAEMORRHAGE
     Route: 042
     Dates: start: 20130924, end: 20130924
  16. MORPHINE [Suspect]
     Active Substance: MORPHINE
     Indication: POSTOPERATIVE ANALGESIA
     Route: 042
     Dates: start: 20130924, end: 20130925

REACTIONS (5)
  - Abnormal behaviour [Recovered/Resolved]
  - Disinhibition [Recovered/Resolved]
  - Mania [Recovered/Resolved]
  - Logorrhoea [Recovered/Resolved]
  - Mood altered [Recovered/Resolved]

NARRATIVE: CASE EVENT DATE: 20130925
